FAERS Safety Report 17910074 (Version 2)
Quarter: 2025Q2

REPORT INFORMATION
  Report Type: Report from Study
  Country: US (occurrence: US)
  Receive Date: 20200618
  Receipt Date: 20250513
  Transmission Date: 20250716
  Serious: Yes (Other)
  Sender: ROCHE
  Company Number: US-ROCHE-2622649

PATIENT
  Age: 61 Year
  Sex: Male

DRUGS (3)
  1. HEMLIBRA [Suspect]
     Active Substance: EMICIZUMAB-KXWH
     Indication: Factor VIII deficiency
     Route: 065
  2. HEMLIBRA [Suspect]
     Active Substance: EMICIZUMAB-KXWH
     Dosage: INJECT 255 MG (1 ML OF 150 MG VIAL AND 0.7 ML OF 105 MG)
     Route: 058
  3. HEMLIBRA [Suspect]
     Active Substance: EMICIZUMAB-KXWH
     Dosage: INJECT 255 MG (1 ML OF 150 MG VIAL AND 0.7 ML OF 105 MG)
     Route: 058

REACTIONS (2)
  - Cough [Unknown]
  - Hernia [Unknown]
